FAERS Safety Report 21438978 (Version 1)
Quarter: 2022Q4

REPORT INFORMATION
  Report Type: Spontaneous
  Country: US (occurrence: None)
  Receive Date: 20221007
  Receipt Date: 20221007
  Transmission Date: 20230113
  Serious: No
  Sender: FDA-Public Use
  Company Number: None

PATIENT
  Age: 82 Year
  Sex: Female
  Weight: 83.91 kg

DRUGS (29)
  1. CYCLOPHOSPHAMIDE [Suspect]
     Active Substance: CYCLOPHOSPHAMIDE
     Indication: Plasma cell myeloma
     Dosage: OTHER FREQUENCY : DAY 1,8,15,22;?
     Route: 048
     Dates: start: 202208
  2. CYCLOPHOSPHAMIDE [Suspect]
     Active Substance: CYCLOPHOSPHAMIDE
     Indication: Plasma cell myeloma
     Dosage: OTHER FREQUENCY : DAY 1,8,15,22;?
     Route: 048
     Dates: start: 202208
  3. ADULT ASPIRIN EC [Concomitant]
  4. ALBUTEROL SULFATE [Concomitant]
     Active Substance: ALBUTEROL SULFATE
  5. AMIODARONE HCL [Concomitant]
  6. ARANESP (ALBUMIN FREE) [Concomitant]
  7. DILTIAZEM [Concomitant]
     Active Substance: DILTIAZEM
  8. DOCUSATE SODIUM [Concomitant]
     Active Substance: DOCUSATE SODIUM
  9. ELIQUIS [Concomitant]
     Active Substance: APIXABAN
  10. FUROSEMIDE [Concomitant]
     Active Substance: FUROSEMIDE
  11. FUROSEMIDE [Concomitant]
     Active Substance: FUROSEMIDE
  12. HUMALOG [Concomitant]
     Active Substance: INSULIN LISPRO
  13. HYDROXYCHLOROQUINE [Concomitant]
     Active Substance: HYDROXYCHLOROQUINE
  14. IBUPROFEN [Concomitant]
     Active Substance: IBUPROFEN
  15. INSULIN NOS [Concomitant]
     Active Substance: INSULIN NOS
  16. JANUVIA [Concomitant]
     Active Substance: SITAGLIPTIN PHOSPHATE
  17. LANTUS [Concomitant]
     Active Substance: INSULIN GLARGINE
  18. LATANOPROST [Concomitant]
     Active Substance: LATANOPROST
  19. LISINOPRIL AND HYDROCHLOROTHIAZIDE [Concomitant]
     Active Substance: HYDROCHLOROTHIAZIDE\LISINOPRIL
  20. METHOCARBAMOL [Concomitant]
     Active Substance: METHOCARBAMOL
  21. METOLAZONE [Concomitant]
     Active Substance: METOLAZONE
  22. METOPROLOL [Concomitant]
  23. PREDNISONE [Concomitant]
     Active Substance: PREDNISONE
  24. SENNA [Concomitant]
     Active Substance: SENNA LEAF\SENNOSIDES\SENNOSIDES A AND B
  25. SIMVASTATIN [Concomitant]
     Active Substance: SIMVASTATIN
  26. POTASSIUM [Concomitant]
  27. TRAMADOL [Concomitant]
     Active Substance: TRAMADOL
  28. VALACYCLOVIR HYDROCHLORIDE [Concomitant]
     Active Substance: VALACYCLOVIR HYDROCHLORIDE
  29. VITAMIN D3 [Concomitant]
     Active Substance: CHOLECALCIFEROL

REACTIONS (3)
  - Fluid retention [None]
  - Pain in extremity [None]
  - Anaemia [None]
